FAERS Safety Report 11311201 (Version 1)
Quarter: 2015Q3

REPORT INFORMATION
  Report Type: Spontaneous
  Country: BR (occurrence: None)
  Receive Date: 20150723
  Receipt Date: 20150723
  Transmission Date: 20151125
  Serious: Yes (Other)
  Sender: FDA-Public Use
  Company Number: INT_00842_2015

PATIENT
  Age: 64 Year
  Sex: Male

DRUGS (12)
  1. PACLITAXEL (PACLITAXEL) [Suspect]
     Active Substance: PACLITAXEL
     Indication: METASTASES TO LUNG
     Dates: start: 201301
  2. PACLITAXEL (PACLITAXEL) [Suspect]
     Active Substance: PACLITAXEL
     Indication: SALIVARY GLAND CANCER
     Dates: start: 201301
  3. METFORMIN [Concomitant]
     Active Substance: METFORMIN HYDROCHLORIDE
  4. CISPLATIN (CISPLATIN) (HQ SPECIALTY) [Suspect]
     Active Substance: CISPLATIN
     Indication: SALIVARY GLAND CANCER
     Dosage: 177 MG IN 1 HR
     Dates: start: 201301
  5. DEXAMETHASONE. [Concomitant]
     Active Substance: DEXAMETHASONE
  6. WARFARIN [Concomitant]
     Active Substance: WARFARIN
  7. CISPLATIN (CISPLATIN) (HQ SPECIALTY) [Suspect]
     Active Substance: CISPLATIN
     Indication: METASTASES TO LUNG
     Dosage: 177 MG IN 1 HR
     Dates: start: 201301
  8. ONDANSETRON [Concomitant]
     Active Substance: ONDANSETRON
  9. HYDROCHLOROTHIAZIDE. [Concomitant]
     Active Substance: HYDROCHLOROTHIAZIDE
  10. DIPHENHYDRAMINE. [Concomitant]
     Active Substance: DIPHENHYDRAMINE
  11. NIFEDIPINE. [Concomitant]
     Active Substance: NIFEDIPINE
  12. CARBOPLATIN. [Concomitant]
     Active Substance: CARBOPLATIN

REACTIONS (1)
  - Type I hypersensitivity [None]

NARRATIVE: CASE EVENT DATE: 2013
